FAERS Safety Report 12369019 (Version 1)
Quarter: 2016Q2

REPORT INFORMATION
  Report Type: Other
  Country: GR (occurrence: GR)
  Receive Date: 20160513
  Receipt Date: 20160513
  Transmission Date: 20160815
  Serious: Yes (Hospitalization)
  Sender: FDA-Public Use
  Company Number: GR-MYLANLABS-2016M1018970

PATIENT

DRUGS (1)
  1. FENTANYL MYLAN [Suspect]
     Active Substance: FENTANYL
     Indication: PAIN
     Dosage: 1 DF, Q3D
     Route: 062
     Dates: start: 20160331, end: 20160414

REACTIONS (4)
  - Application site burn [Recovered/Resolved]
  - Swelling [Recovered/Resolved]
  - Drug withdrawal syndrome [Recovered/Resolved]
  - Swelling face [Recovered/Resolved]
